FAERS Safety Report 5761202-5 (Version None)
Quarter: 2008Q2

REPORT INFORMATION
  Report Type: 
  Country: None (occurrence: None)
  Receive Date: 20080606
  Receipt Date: 20080526
  Transmission Date: 20081010
  Serious: Yes (Other)
  Sender: FDA-Public Use
  Company Number: PHBS2008DE04645

PATIENT
  Age: 12 Year
  Sex: Male

DRUGS (3)
  1. CYCLOSPORINE [Suspect]
     Indication: RENAL TRANSPLANT
  2. MYCOPHENOLATE MOFETIL [Suspect]
     Indication: RENAL TRANSPLANT
  3. PREDNISONE TAB [Suspect]
     Indication: RENAL TRANSPLANT

REACTIONS (8)
  - BICYTOPENIA [None]
  - DRUG TOXICITY [None]
  - EPSTEIN-BARR VIRUS INFECTION [None]
  - HODGKIN'S DISEASE [None]
  - LYMPHADENOPATHY [None]
  - MUCOSAL INFLAMMATION [None]
  - NEUROPATHY PERIPHERAL [None]
  - ORAL CANDIDIASIS [None]
